FAERS Safety Report 20751848 (Version 1)
Quarter: 2022Q2

REPORT INFORMATION
  Report Type: Spontaneous
  Country: CN (occurrence: CN)
  Receive Date: 20220426
  Receipt Date: 20220426
  Transmission Date: 20220721
  Serious: Yes (Other)
  Sender: FDA-Public Use
  Company Number: CN-PFIZER INC-202200611373

PATIENT
  Age: 12 Month
  Sex: Female
  Weight: 12 kg

DRUGS (5)
  1. METHOTREXATE [Suspect]
     Active Substance: METHOTREXATE
     Indication: Acute lymphocytic leukaemia
     Dosage: 2.6 G, 1X/DAY
     Route: 041
     Dates: start: 20220322, end: 20220322
  2. CYCLOPHOSPHAMIDE [Concomitant]
     Active Substance: CYCLOPHOSPHAMIDE
     Indication: Acute lymphocytic leukaemia
     Dosage: 0.104 G, 2X/DAY
     Route: 041
     Dates: start: 20220323, end: 20220324
  3. VINDESINE SULFATE [Concomitant]
     Active Substance: VINDESINE SULFATE
     Indication: Acute lymphocytic leukaemia
     Dosage: 1.56 MG, 1X/DAY
     Route: 040
     Dates: start: 20220322, end: 20220322
  4. DEXAMETHASONE ACETATE [Concomitant]
     Active Substance: DEXAMETHASONE ACETATE
     Indication: Acute lymphocytic leukaemia
     Dosage: 10.4 MG, DAILY (DIVIDED INTO 3 TIMES)
     Route: 048
     Dates: start: 20220322, end: 20220325
  5. MESNA [Concomitant]
     Active Substance: MESNA
     Indication: Therapeutic procedure
     Dosage: 0.036 G, 4X/DAY
     Route: 042
     Dates: start: 20220322, end: 20220325

REACTIONS (2)
  - Oral disorder [Recovering/Resolving]
  - Mucosal disorder [Recovering/Resolving]

NARRATIVE: CASE EVENT DATE: 20220325
